FAERS Safety Report 4971758-8 (Version None)
Quarter: 2006Q2

REPORT INFORMATION
  Report Type: 
  Country: None (occurrence: None)
  Receive Date: 20060406
  Receipt Date: 20060327
  Transmission Date: 20061013
  Serious: Yes (Other)
  Sender: FDA-Public Use
  Company Number: 2006043457

PATIENT
  Sex: Female

DRUGS (1)
  1. SERTRALINE [Suspect]
     Indication: ILL-DEFINED DISORDER

REACTIONS (8)
  - DRUG TOXICITY [None]
  - DRUG WITHDRAWAL SYNDROME NEONATAL [None]
  - ELECTROENCEPHALOGRAM ABNORMAL [None]
  - FEELING JITTERY [None]
  - IRRITABILITY [None]
  - MYOCLONUS [None]
  - OPISTHOTONUS [None]
  - TARDIVE DYSKINESIA [None]
